FAERS Safety Report 7083728-7 (Version None)
Quarter: 2010Q4

REPORT INFORMATION
  Report Type: 
  Country: None (occurrence: None)
  Receive Date: 20101103
  Receipt Date: 20101103
  Transmission Date: 20110411
  Serious: No
  Sender: FDA-Public Use
  Company Number: None

PATIENT
  Age: 52 Year
  Sex: Male
  Weight: 78.47 kg

DRUGS (1)
  1. OXYCODONE HCL [Suspect]
     Dosage: 5 MG QID PO
     Route: 048
     Dates: start: 20101019

REACTIONS (1)
  - TREATMENT FAILURE [None]
